FAERS Safety Report 7630339-8 (Version None)
Quarter: 2011Q3

REPORT INFORMATION
  Report Type: 
  Country: None (occurrence: None)
  Receive Date: 20110722
  Receipt Date: 20110711
  Transmission Date: 20111222
  Serious: Yes (Disabling, Other)
  Sender: FDA-Public Use
  Company Number: US-AMGEN-USASP2011035119

PATIENT
  Sex: Male

DRUGS (2)
  1. ENBREL [Suspect]
     Indication: PSORIATIC ARTHROPATHY
     Dosage: 50 MG, QWK
     Dates: start: 20030331
  2. ENBREL [Suspect]
     Indication: PSORIASIS

REACTIONS (5)
  - PSORIATIC ARTHROPATHY [None]
  - MALAISE [None]
  - PYREXIA [None]
  - PSORIASIS [None]
  - ABASIA [None]
